FAERS Safety Report 6975752-7 (Version None)
Quarter: 2010Q3

REPORT INFORMATION
  Report Type: 
  Country: None (occurrence: None)
  Receive Date: 20100910
  Receipt Date: 20090327
  Transmission Date: 20110219
  Serious: No
  Sender: FDA-Public Use
  Company Number: US-WYE-H08749809

PATIENT
  Sex: Female
  Weight: 115.32 kg

DRUGS (3)
  1. PRISTIQ [Suspect]
     Indication: DEPRESSION
     Route: 048
     Dates: start: 20090326
  2. ABILIFY [Concomitant]
  3. XANAX [Concomitant]

REACTIONS (2)
  - EATING DISORDER [None]
  - NAUSEA [None]
